FAERS Safety Report 23333052 (Version 1)
Quarter: 2023Q4

REPORT INFORMATION
  Report Type: Spontaneous
  Country: GB (occurrence: GB)
  Receive Date: 20231222
  Receipt Date: 20231222
  Transmission Date: 20240110
  Serious: Yes (Other)
  Sender: FDA-Public Use
  Company Number: GB-MHRA-TPP33287250C2580113YC1701954790762

PATIENT
  Age: 73 Year
  Sex: Female
  Weight: 54 kg

DRUGS (12)
  1. DONEPEZIL [Suspect]
     Active Substance: DONEPEZIL
     Indication: Product used for unknown indication
     Dosage: 10 MILLIGRAM, 1 DOSE
     Route: 065
     Dates: start: 20230224
  2. CHLORAMPHENICOL [Concomitant]
     Active Substance: CHLORAMPHENICOL
     Indication: Product used for unknown indication
     Dosage: IN THE AFFECTED EYE(S) AT ONSET OF...
     Route: 065
     Dates: start: 20221102
  3. CLOTRIMAZOLE [Concomitant]
     Active Substance: CLOTRIMAZOLE
     Indication: Product used for unknown indication
     Dosage: APPLY 2-3 TIMES/DAY
     Route: 061
     Dates: start: 20221102
  4. DOXYCYCLINE [Concomitant]
     Active Substance: DOXYCYCLINE
     Indication: Product used for unknown indication
     Dosage: TWO NOW THEN ONE DAILY
     Route: 065
     Dates: start: 20230926, end: 20231003
  5. FOLIC ACID [Concomitant]
     Active Substance: FOLIC ACID
     Indication: Product used for unknown indication
     Dosage: 1 DOSAGE FORM, 1 DOSE
     Route: 065
     Dates: start: 20231121
  6. POTASSIUM BICARBONATE\SODIUM ALGINATE [Concomitant]
     Active Substance: POTASSIUM BICARBONATE\SODIUM ALGINATE
     Indication: Product used for unknown indication
     Dosage: 10 -20 MLS AFTER MEALS AND BEFORE BED TIME
     Route: 065
     Dates: start: 20221102
  7. HYDROCORTISONE [Concomitant]
     Active Substance: HYDROCORTISONE
     Indication: Product used for unknown indication
     Dosage: ON RASHES
     Route: 061
     Dates: start: 20221102
  8. KEPPRA [Concomitant]
     Active Substance: LEVETIRACETAM
     Indication: Product used for unknown indication
     Dosage: 10 MILLILITER, 2 DOSE
     Route: 065
     Dates: start: 20221124
  9. LEVOTHYROXINE [Concomitant]
     Active Substance: LEVOTHYROXINE
     Indication: Product used for unknown indication
     Dosage: MORNING
     Route: 065
     Dates: start: 20230817
  10. MACROGOL COMPOUND [Concomitant]
     Indication: Product used for unknown indication
     Dosage: DAILY
     Route: 065
     Dates: start: 20221102
  11. MIDAZOLAM [Concomitant]
     Active Substance: MIDAZOLAM
     Indication: Product used for unknown indication
     Dosage: AS DIRECTED (RESCUE MEDICATION FOR EPIL...
     Route: 065
     Dates: start: 20231129
  12. ZEROBASE [Concomitant]
     Indication: Product used for unknown indication
     Dosage: AS SOAP IN BATHING AND THEN AS MOISTURISE...
     Route: 061
     Dates: start: 20221102

REACTIONS (1)
  - Joint swelling [Recovered/Resolved]
